FAERS Safety Report 22095551 (Version 1)
Quarter: 2023Q1

REPORT INFORMATION
  Report Type: Spontaneous
  Country: US (occurrence: US)
  Receive Date: 20230314
  Receipt Date: 20230314
  Transmission Date: 20230418
  Serious: Yes (Death)
  Sender: FDA-Public Use
  Company Number: US-PFIZER INC-202300102454

PATIENT
  Age: 65 Year
  Sex: Female
  Weight: 56.7 kg

DRUGS (2)
  1. XALKORI [Suspect]
     Active Substance: CRIZOTINIB
     Indication: Neoplasm malignant
     Dosage: 250 MG, 2X/DAY (250MG CAPSULE TAKEN TWICE A DAY )
     Dates: start: 20230127, end: 20230224
  2. ZYPREXA [Concomitant]
     Active Substance: OLANZAPINE
     Dosage: 5 MG, 2X/DAY (COUNT SIZE: 30 COUNT )

REACTIONS (3)
  - Neoplasm progression [Fatal]
  - Nervous system disorder [Fatal]
  - Dysphagia [Fatal]
